FAERS Safety Report 8351085-1 (Version None)
Quarter: 2012Q2

REPORT INFORMATION
  Report Type: 
  Country: None (occurrence: None)
  Receive Date: 20120510
  Receipt Date: 20120508
  Transmission Date: 20120825
  Serious: Yes (Life-Threatening, Hospitalization)
  Sender: FDA-Public Use
  Company Number: PHHY2012NO034481

PATIENT
  Sex: Female

DRUGS (6)
  1. LANOXIN [Concomitant]
     Indication: CARDIOVASCULAR DISORDER
     Route: 048
     Dates: end: 20120201
  2. LISINOPRIL [Concomitant]
     Indication: CARDIOVASCULAR DISORDER
     Route: 048
  3. SIMVASTATIN [Interacting]
     Indication: BLOOD CHOLESTEROL INCREASED
     Dosage: 80 MG, QD
     Route: 048
     Dates: start: 20110101, end: 20120201
  4. AMLODIPINE BESYLATE [Suspect]
     Indication: CARDIOVASCULAR DISORDER
     Dosage: 10 MG, QD
     Route: 048
     Dates: end: 20120201
  5. ACETYLSALICYLIC ACID SRT [Concomitant]
     Indication: CARDIOVASCULAR DISORDER
     Route: 048
  6. METOPROLOL TARTRATE [Concomitant]
     Indication: CARDIOVASCULAR DISORDER
     Dosage: CONTROLLED RELEASED TABLETS
     Route: 048

REACTIONS (12)
  - RHABDOMYOLYSIS [None]
  - LISTLESS [None]
  - NIGHT SWEATS [None]
  - OLIGURIA [None]
  - ASTHENIA [None]
  - TRANSAMINASES INCREASED [None]
  - DRUG INTERACTION [None]
  - RENAL FAILURE [None]
  - GENERAL PHYSICAL HEALTH DETERIORATION [None]
  - GAIT DISTURBANCE [None]
  - METABOLIC ACIDOSIS [None]
  - DECREASED APPETITE [None]
